FAERS Safety Report 5122546-3 (Version None)
Quarter: 2006Q4

REPORT INFORMATION
  Report Type: 
  Country: None (occurrence: None)
  Receive Date: 20061005
  Receipt Date: 20061005
  Transmission Date: 20070319
  Serious: Yes (Other)
  Sender: FDA-Public Use
  Company Number: None

PATIENT
  Age: 42 Year
  Sex: Female
  Weight: 89.8122 kg

DRUGS (1)
  1. MACROBID [Suspect]
     Indication: URINARY TRACT INFECTION
     Dosage: 100 MGM BID PO
     Route: 048
     Dates: start: 20060808, end: 20060809

REACTIONS (1)
  - SERUM SICKNESS [None]
